FAERS Safety Report 5674852-1 (Version None)
Quarter: 2008Q2

REPORT INFORMATION
  Report Type: 
  Country: None (occurrence: None)
  Receive Date: 20080307
  Receipt Date: 20070719
  Transmission Date: 20081010
  Serious: No
  Sender: FDA-Public Use
  Company Number: 07H-163-0312919-00

PATIENT
  Age: 74 Year
  Sex: Female

DRUGS (2)
  1. FENTANYL CITRATE [Suspect]
     Dosage: 1000MCG/100ML, CONTINUOUS, INTRAVENOUS
     Route: 042
     Dates: start: 20070718, end: 20070718
  2. PROPOFOL [Concomitant]

REACTIONS (4)
  - HYPOTENSION [None]
  - MEDICATION ERROR [None]
  - OVERDOSE [None]
  - OXYGEN SATURATION DECREASED [None]
